FAERS Safety Report 21863133 (Version 3)
Quarter: 2024Q1

REPORT INFORMATION
  Report Type: Spontaneous
  Country: US (occurrence: US)
  Receive Date: 20230115
  Receipt Date: 20240221
  Transmission Date: 20240410
  Serious: No
  Sender: FDA-Public Use
  Company Number: US-ELI_LILLY_AND_COMPANY-US202211002609

PATIENT
  Age: 53 Year
  Sex: Female

DRUGS (12)
  1. MOUNJARO [Suspect]
     Active Substance: TIRZEPATIDE
     Indication: Overweight
     Dosage: 5 MG, UNKNOWN
     Route: 065
  2. MOUNJARO [Suspect]
     Active Substance: TIRZEPATIDE
     Indication: Overweight
     Dosage: 5 MG, UNKNOWN
     Route: 065
  3. MOUNJARO [Suspect]
     Active Substance: TIRZEPATIDE
     Indication: Overweight
     Dosage: 5 MG, UNKNOWN
     Route: 065
  4. MOUNJARO [Suspect]
     Active Substance: TIRZEPATIDE
     Indication: Overweight
     Dosage: 5 MG, UNKNOWN
     Route: 065
  5. MOUNJARO [Suspect]
     Active Substance: TIRZEPATIDE
     Indication: Type 2 diabetes mellitus
     Dosage: 10 MG, UNKNOWN
     Route: 065
  6. MOUNJARO [Suspect]
     Active Substance: TIRZEPATIDE
     Indication: Type 2 diabetes mellitus
     Dosage: 10 MG, UNKNOWN
     Route: 065
  7. MOUNJARO [Suspect]
     Active Substance: TIRZEPATIDE
     Indication: Type 2 diabetes mellitus
     Dosage: 10 MG, UNKNOWN
     Route: 065
  8. MOUNJARO [Suspect]
     Active Substance: TIRZEPATIDE
     Indication: Type 2 diabetes mellitus
     Dosage: 10 MG, UNKNOWN
     Route: 065
  9. MOUNJARO [Suspect]
     Active Substance: TIRZEPATIDE
     Dosage: 7.5 MG, UNKNOWN
     Route: 065
  10. MOUNJARO [Suspect]
     Active Substance: TIRZEPATIDE
     Dosage: 7.5 MG, UNKNOWN
     Route: 065
  11. MOUNJARO [Suspect]
     Active Substance: TIRZEPATIDE
     Dosage: 7.5 MG, UNKNOWN
     Route: 065
  12. MOUNJARO [Suspect]
     Active Substance: TIRZEPATIDE
     Dosage: 7.5 MG, UNKNOWN
     Route: 065

REACTIONS (2)
  - Nausea [Unknown]
  - Inappropriate schedule of product administration [Unknown]
